FAERS Safety Report 12790043 (Version 3)
Quarter: 2016Q4

REPORT INFORMATION
  Report Type: Report from Study
  Country: US (occurrence: US)
  Receive Date: 20160928
  Receipt Date: 20161103
  Transmission Date: 20170207
  Serious: Yes (Hospitalization)
  Sender: FDA-Public Use
  Company Number: US-TAKEDA-2016TUS016867

PATIENT
  Age: 13 Year
  Sex: Female

DRUGS (5)
  1. LEXAPRO [Concomitant]
     Active Substance: ESCITALOPRAM OXALATE
     Indication: MAJOR DEPRESSION
     Dosage: 5 MG, QD
     Route: 048
     Dates: start: 20160418, end: 20160508
  2. LEXAPRO [Concomitant]
     Active Substance: ESCITALOPRAM OXALATE
     Dosage: 10 MG, QD
     Route: 048
     Dates: start: 20160509, end: 20160630
  3. LEXAPRO [Concomitant]
     Active Substance: ESCITALOPRAM OXALATE
     Dosage: 10 MG, QD
     Route: 048
     Dates: start: 20160917
  4. VORTIOXETINE [Suspect]
     Active Substance: VORTIOXETINE
     Indication: MAJOR DEPRESSION
     Dosage: UNK
     Route: 065
     Dates: start: 20160716, end: 20160912
  5. LEXAPRO [Concomitant]
     Active Substance: ESCITALOPRAM OXALATE
     Dosage: 5 MG, QD
     Route: 048
     Dates: start: 20160915, end: 20160916

REACTIONS (1)
  - Suicidal ideation [Recovered/Resolved]

NARRATIVE: CASE EVENT DATE: 20160913
